FAERS Safety Report 7458650-4 (Version None)
Quarter: 2011Q2

REPORT INFORMATION
  Report Type: 
  Country: None (occurrence: None)
  Receive Date: 20110504
  Receipt Date: 20100624
  Transmission Date: 20111010
  Serious: No
  Sender: FDA-Public Use
  Company Number: US-SANOFI-AVENTIS-2010SA037802

PATIENT
  Age: 70 Year
  Sex: Male

DRUGS (4)
  1. APIDRA [Suspect]
     Dosage: DOSE:15 UNIT(S)
     Route: 058
     Dates: start: 20050101
  2. LANTUS [Suspect]
     Route: 058
  3. OPTICLICK [Suspect]
     Dates: start: 20050101
  4. OPTICLICK [Suspect]
     Dates: start: 20050101

REACTIONS (1)
  - VISUAL ACUITY REDUCED [None]
